FAERS Safety Report 14173908 (Version 5)
Quarter: 2018Q2

REPORT INFORMATION
  Report Type: Report from Study
  Country: JP (occurrence: JP)
  Receive Date: 20171109
  Receipt Date: 20180608
  Transmission Date: 20180711
  Serious: Yes (Hospitalization)
  Sender: FDA-Public Use
  Company Number: JP-EISAI MEDICAL RESEARCH-EC-2017-032830

PATIENT
  Age: 73 Year
  Sex: Male
  Weight: 67 kg

DRUGS (31)
  1. LENVATINIB [Suspect]
     Active Substance: LENVATINIB
     Route: 048
     Dates: start: 20180109, end: 20180302
  2. NALFURAFINE HYDROCHLORIDE [Concomitant]
     Active Substance: NALFURAFINE HYDROCHLORIDE
  3. LENVATINIB [Suspect]
     Active Substance: LENVATINIB
     Indication: HEPATOCELLULAR CARCINOMA
     Route: 048
     Dates: start: 20171018, end: 20171029
  4. LENVATINIB [Suspect]
     Active Substance: LENVATINIB
     Route: 048
     Dates: start: 20171031, end: 20171101
  5. PEMBROLIZUMAB. [Suspect]
     Active Substance: PEMBROLIZUMAB
     Indication: HEPATOCELLULAR CARCINOMA
     Route: 041
     Dates: start: 20171018, end: 20180425
  6. ATARAX [Concomitant]
     Active Substance: HYDROXYZINE HYDROCHLORIDE
  7. LENVATINIB [Suspect]
     Active Substance: LENVATINIB
     Route: 048
     Dates: start: 20171115, end: 20171225
  8. JANUVIA [Concomitant]
     Active Substance: SITAGLIPTIN PHOSPHATE
  9. URSODEOXYCHOLIC ACID [Concomitant]
     Active Substance: URSODIOL
  10. FAMOTIDINE D [Concomitant]
     Active Substance: FAMOTIDINE
  11. WHITE PETROLATUM [Concomitant]
     Active Substance: PETROLATUM
  12. ANTEBATE [Concomitant]
     Active Substance: BETAMETHASONE DIPROPIONATE
  13. OLOPATADINE HYDROCHLORIDE. [Concomitant]
     Active Substance: OLOPATADINE HYDROCHLORIDE
  14. GLUCOSE [Concomitant]
     Active Substance: DEXTROSE
  15. FEXOFENADINE HYDROCHLORIDE. [Concomitant]
     Active Substance: FEXOFENADINE HYDROCHLORIDE
  16. DERMOVATE [Concomitant]
     Active Substance: CLOBETASOL
  17. MENTHA OIL [Concomitant]
  18. PICOSULFATE NA [Concomitant]
     Active Substance: SODIUM PICOSULFATE
  19. QUETIAPINE. [Concomitant]
     Active Substance: QUETIAPINE
  20. GLIMICRON [Concomitant]
     Active Substance: GLICLAZIDE
  21. LAGNOS [Concomitant]
  22. NERISONA [Concomitant]
     Active Substance: DIFLUCORTOLONE VALERATE
  23. LENVATINIB [Suspect]
     Active Substance: LENVATINIB
     Route: 048
     Dates: start: 20180306, end: 20180426
  24. NIFEDIPINE. [Concomitant]
     Active Substance: NIFEDIPINE
  25. SPIRONOLACTONE. [Concomitant]
     Active Substance: SPIRONOLACTONE
  26. TAMSULOSIN HYDROCHLORIDE. [Concomitant]
     Active Substance: TAMSULOSIN HYDROCHLORIDE
  27. HEPARINOID [Concomitant]
     Active Substance: CHONDROITIN SULFATE (BOVINE)
  28. GENTAMICIN SULFATE. [Concomitant]
     Active Substance: GENTAMICIN SULFATE
  29. LENVATINIB [Suspect]
     Active Substance: LENVATINIB
     Route: 048
     Dates: start: 20171030, end: 20171030
  30. LENVATINIB [Suspect]
     Active Substance: LENVATINIB
     Route: 048
     Dates: start: 20171103, end: 20171107
  31. SOLITA-T NO 1 [Concomitant]

REACTIONS (4)
  - Hydrocele [Recovering/Resolving]
  - General physical health deterioration [Recovering/Resolving]
  - White blood cell count decreased [Recovered/Resolved]
  - Hyperammonaemia [Recovered/Resolved]

NARRATIVE: CASE EVENT DATE: 20171101
